FAERS Safety Report 9726468 (Version 2)
Quarter: 2014Q1

REPORT INFORMATION
  Report Type: Spontaneous
  Country: None (occurrence: None)
  Receive Date: 20131129
  Receipt Date: 20140106
  Transmission Date: 20141002
  Serious: Yes (Other)
  Sender: FDA-Public Use
  Company Number: ADR-2013-02172

PATIENT
  Age: 51 Year
  Sex: Male

DRUGS (1)
  1. LIORESAL INTRATHECAL (BACLOFEN INJECTION) [Suspect]

REACTIONS (4)
  - Anxiety [None]
  - Anxiety [None]
  - Feeling of despair [None]
  - Anxiety [None]
